FAERS Safety Report 24916734 (Version 1)
Quarter: 2025Q1

REPORT INFORMATION
  Report Type: Spontaneous
  Country: GB (occurrence: GB)
  Receive Date: 20250203
  Receipt Date: 20250203
  Transmission Date: 20250408
  Serious: Yes (Other)
  Sender: MYLAN
  Company Number: GB-MHRA-EMIS-3754-dcbd4c6a-564b-4b00-b77e-88e6107b4fcc

PATIENT
  Age: 73 Year
  Sex: Female
  Weight: 107 kg

DRUGS (4)
  1. DOXAZOSIN [Suspect]
     Active Substance: DOXAZOSIN MESYLATE
     Indication: Product used for unknown indication
     Dosage: 1 DOSAGE FORM, QD (ONE TO BE TAKEN EACH DAY)
     Route: 065
     Dates: start: 20241205, end: 20241224
  2. EZETIMIBE [Concomitant]
     Active Substance: EZETIMIBE
     Dosage: 1 DOSAGE FORM, QD (ONE TO BE TAKEN EACH DAY)
     Route: 065
     Dates: start: 20241108
  3. DOXAZOSIN [Concomitant]
     Active Substance: DOXAZOSIN MESYLATE
     Dosage: 1 DOSAGE FORM, QD (ONE TO BE TAKEN EACH DAY, AFTER TWO WEEKS- INCREASE TO TWO TABLETS DAILY)
     Route: 065
     Dates: start: 20241216, end: 20250128
  4. DOXAZOSIN [Concomitant]
     Active Substance: DOXAZOSIN MESYLATE
     Dosage: 2 DOSAGE FORM, QD (ONE TO BE TAKEN EACH DAY, AFTER TWO WEEKS- INCREASE TO TWO TABLETS DAILY)
     Route: 065
     Dates: start: 20250129

REACTIONS (1)
  - Depressed level of consciousness [Unknown]
